FAERS Safety Report 7531420-4 (Version None)
Quarter: 2011Q2

REPORT INFORMATION
  Report Type: 
  Country: None (occurrence: None)
  Receive Date: 20110608
  Receipt Date: 20110531
  Transmission Date: 20111010
  Serious: Yes (Other)
  Sender: FDA-Public Use
  Company Number: US-ASTRAZENECA-2011SE32345

PATIENT
  Age: 80 Year
  Sex: Female

DRUGS (1)
  1. NEXIUM [Suspect]
     Route: 048

REACTIONS (5)
  - FALL [None]
  - OSTEOPOROSIS [None]
  - UPPER LIMB FRACTURE [None]
  - HIATUS HERNIA [None]
  - WRIST FRACTURE [None]
